FAERS Safety Report 10060632 (Version 4)
Quarter: 2021Q3

REPORT INFORMATION
  Report Type: Report from Study
  Country: None (occurrence: DK)
  Receive Date: 20140404
  Receipt Date: 20210917
  Transmission Date: 20211014
  Serious: Yes (Other)
  Sender: FDA-Public Use
  Company Number: DK-ABBVIE-14P-044-1219810-00

PATIENT
  Age: 57 Year
  Sex: Male
  Weight: 84 kg

DRUGS (6)
  1. METHOTREXATE. [Concomitant]
     Active Substance: METHOTREXATE
     Indication: PSORIASIS
     Dates: start: 2008
  2. FOLIC ACID. [Concomitant]
     Active Substance: FOLIC ACID
     Indication: PSORIASIS
     Dates: start: 200812
  3. METEX [Concomitant]
     Indication: PSORIASIS
     Dates: start: 20131211, end: 201401
  4. HUMIRA [Suspect]
     Active Substance: ADALIMUMAB
     Indication: PSORIASIS
     Route: 058
     Dates: start: 20100125, end: 20100125
  5. HUMIRA [Suspect]
     Active Substance: ADALIMUMAB
     Route: 058
     Dates: end: 20130123
  6. METHOTREXATE. [Concomitant]
     Active Substance: METHOTREXATE
     Dates: start: 2008

REACTIONS (1)
  - Prostate cancer metastatic [Recovered/Resolved]

NARRATIVE: CASE EVENT DATE: 201301
